FAERS Safety Report 23272978 (Version 1)
Quarter: 2023Q4

REPORT INFORMATION
  Report Type: Spontaneous
  Country: US (occurrence: US)
  Receive Date: 20231207
  Receipt Date: 20231207
  Transmission Date: 20240109
  Serious: Yes (Other)
  Sender: FDA-Public Use
  Company Number: US-PFIZER INC-202300414960

PATIENT
  Age: 53 Year
  Sex: Male

DRUGS (12)
  1. METHOTREXATE SODIUM [Suspect]
     Active Substance: METHOTREXATE SODIUM
     Indication: B-cell lymphoma recurrent
     Dosage: CYCLIC (3 CYCLES, HIGH-DOSE)
  2. RITUXIMAB [Suspect]
     Active Substance: RITUXIMAB
     Indication: B-cell lymphoma recurrent
     Dosage: UNK, CYCLIC (3 CYCLES )
  3. DOXORUBICIN HYDROCHLORIDE [Suspect]
     Active Substance: DOXORUBICIN HYDROCHLORIDE
     Indication: Diffuse large B-cell lymphoma
     Dosage: UNK, CYCLIC (6 CYCLES )
  4. VINCRISTINE SULFATE [Suspect]
     Active Substance: VINCRISTINE SULFATE
     Indication: Diffuse large B-cell lymphoma
     Dosage: UNK, CYCLIC (6 CYCLES )
  5. CYTARABINE [Suspect]
     Active Substance: CYTARABINE
     Indication: Diffuse large B-cell lymphoma
     Dosage: UNK, CYCLIC (6 CYCLES )
     Route: 037
  6. PREDNISONE [Suspect]
     Active Substance: PREDNISONE
     Dosage: UNK, CYCLIC (3 CYCLES )
  7. TEMOZOLOMIDE [Suspect]
     Active Substance: TEMOZOLOMIDE
     Indication: B-cell lymphoma recurrent
     Dosage: SIX DOSES
  8. ETOPOSIDE [Suspect]
     Active Substance: ETOPOSIDE
     Indication: B-cell lymphoma recurrent
     Dosage: UNK
  9. LENALIDOMIDE [Suspect]
     Active Substance: LENALIDOMIDE
     Indication: B-cell lymphoma recurrent
     Dosage: 10 MG, DAILY
  10. POMALIDOMIDE [Suspect]
     Active Substance: POMALIDOMIDE
     Indication: B-cell lymphoma recurrent
     Dosage: UNK
  11. ISAVUCONAZONIUM [Suspect]
     Active Substance: ISAVUCONAZONIUM
     Indication: Diffuse large B-cell lymphoma
     Dosage: UNK
  12. IBRUTINIB [Suspect]
     Active Substance: IBRUTINIB
     Indication: Diffuse large B-cell lymphoma
     Dosage: UNK

REACTIONS (1)
  - Pneumonia respiratory syncytial viral [Unknown]
